FAERS Safety Report 6972815-7 (Version None)
Quarter: 2010Q3

REPORT INFORMATION
  Report Type: 
  Country: None (occurrence: None)
  Receive Date: 20100909
  Receipt Date: 20100809
  Transmission Date: 20110219
  Serious: No
  Sender: FDA-Public Use
  Company Number: US-BAYER-201019639BCC

PATIENT
  Age: 62 Year
  Sex: Male
  Weight: 112 kg

DRUGS (7)
  1. ALEVE (CAPLET) [Suspect]
     Indication: BACK PAIN
     Dosage: TOTAL DAILY DOSE: 880 MG  UNIT DOSE: 220 MG
     Route: 048
     Dates: start: 20090201
  2. CLARINEX [Concomitant]
     Route: 065
  3. CELEXA [Concomitant]
     Route: 065
  4. METOPROL [Concomitant]
     Route: 065
  5. LASIX [Concomitant]
     Route: 065
  6. POTASSIUM [Concomitant]
     Route: 065
  7. UNKNOWN MULTI VITAMIN [Concomitant]
     Route: 065

REACTIONS (2)
  - CONTUSION [None]
  - PLATELET COUNT DECREASED [None]
